APPROVED DRUG PRODUCT: METANDREN
Active Ingredient: METHYLTESTOSTERONE
Strength: 10MG
Dosage Form/Route: TABLET;BUCCAL, SUBLINGUAL
Application: N003240 | Product #005
Applicant: NOVARTIS PHARMACEUTICALS CORP
Approved: Approved Prior to Jan 1, 1982 | RLD: No | RS: No | Type: DISCN